FAERS Safety Report 8323296-2 (Version None)
Quarter: 2012Q2

REPORT INFORMATION
  Report Type: 
  Country: None (occurrence: None)
  Receive Date: 20120430
  Receipt Date: 20120418
  Transmission Date: 20120825
  Serious: Yes (Death, Hospitalization)
  Sender: FDA-Public Use
  Company Number: FR-BAXTER-2012BH006979

PATIENT
  Sex: Male

DRUGS (12)
  1. PREDNISOLONE [Concomitant]
     Route: 065
     Dates: start: 20120204
  2. ROCEPHIN [Concomitant]
     Route: 065
     Dates: start: 20120202
  3. METHOTREXATE [Suspect]
     Indication: DIFFUSE LARGE B-CELL LYMPHOMA
     Route: 042
     Dates: start: 20120204, end: 20120204
  4. METHOTREXATE [Concomitant]
     Route: 037
     Dates: start: 20120205
  5. CYCLOPHOSPHAMIDE [Suspect]
     Indication: DIFFUSE LARGE B-CELL LYMPHOMA
     Route: 042
     Dates: start: 20120205, end: 20120207
  6. MABTHERA [Suspect]
     Indication: DIFFUSE LARGE B-CELL LYMPHOMA
     Route: 042
     Dates: start: 20120202, end: 20120202
  7. VINCRISTINE SULFATE [Suspect]
     Indication: DIFFUSE LARGE B-CELL LYMPHOMA
     Route: 042
     Dates: start: 20120204, end: 20120204
  8. DOXORUBICIN HCL [Suspect]
     Indication: DIFFUSE LARGE B-CELL LYMPHOMA
     Route: 042
     Dates: start: 20120205, end: 20120205
  9. HYDROCORTISONE [Concomitant]
     Route: 037
     Dates: start: 20120205
  10. CALCIUM FOLINATE [Concomitant]
     Route: 065
     Dates: start: 20120205
  11. CLAMOXYL                           /00249601/ [Concomitant]
     Route: 065
     Dates: end: 20120202
  12. LASIX [Concomitant]
     Route: 042
     Dates: start: 20120204

REACTIONS (4)
  - MULTI-ORGAN FAILURE [None]
  - HEPATITIS FULMINANT [None]
  - TOXIC EPIDERMAL NECROLYSIS [None]
  - PANCYTOPENIA [None]
